FAERS Safety Report 5421729-2 (Version None)
Quarter: 2007Q3

REPORT INFORMATION
  Report Type: 
  Country: None (occurrence: None)
  Receive Date: 20070725
  Receipt Date: 20070529
  Transmission Date: 20080115
  Serious: Yes (Hospitalization, Other)
  Sender: FDA-Public Use
  Company Number: 2007EN000159

PATIENT
  Sex: Female

DRUGS (4)
  1. OPANA ER [Suspect]
     Indication: PAIN
  2. ANESTHETICS, GENERAL [Suspect]
     Indication: SURGERY
     Dosage: X1
  3. PCA [Suspect]
     Indication: PAIN
     Dosage: IV
     Route: 042
  4. MS CONTIN [Suspect]
     Indication: PAIN

REACTIONS (2)
  - ABNORMAL BEHAVIOUR [None]
  - DISORIENTATION [None]
